FAERS Safety Report 10392669 (Version 2)
Quarter: 2014Q3

REPORT INFORMATION
  Report Type: Spontaneous
  Country: US (occurrence: US)
  Receive Date: 20140819
  Receipt Date: 20140924
  Transmission Date: 20150326
  Serious: No
  Sender: FDA-Public Use
  Company Number: US-PFIZER INC-2014229326

PATIENT
  Age: 57 Year
  Sex: Male
  Weight: 81.63 kg

DRUGS (5)
  1. METHOTREXATE [Suspect]
     Active Substance: METHOTREXATE
     Indication: ARTHRALGIA
     Dosage: 15 MG, WEEKLY
  2. MEDROL [Suspect]
     Active Substance: METHYLPREDNISOLONE
     Indication: ARTHRALGIA
     Dosage: UNK
  3. CYTOTEC [Concomitant]
     Active Substance: MISOPROSTOL
     Indication: GASTRIC HAEMORRHAGE
     Dosage: UNK, DAILY
  4. PREDNISONE. [Suspect]
     Active Substance: PREDNISONE
     Indication: ARTHRALGIA
     Dosage: UNK, ONCE EVERY 2 MONTHS
  5. SUCRALFATE. [Concomitant]
     Active Substance: SUCRALFATE
     Dosage: UNK

REACTIONS (1)
  - Drug ineffective [Unknown]
